FAERS Safety Report 11291483 (Version 2)
Quarter: 2015Q3

REPORT INFORMATION
  Report Type: Spontaneous
  Country: CA (occurrence: CA)
  Receive Date: 20150722
  Receipt Date: 20150803
  Transmission Date: 20151125
  Serious: Yes (Life-Threatening, Hospitalization)
  Sender: FDA-Public Use
  Company Number: CA-JNJFOC-20150710279

PATIENT
  Age: 61 Year
  Sex: Female

DRUGS (11)
  1. ESTRING [Concomitant]
     Active Substance: ESTRADIOL
  2. INVOKANA [Suspect]
     Active Substance: CANAGLIFLOZIN
     Indication: DIABETES MELLITUS
     Route: 065
     Dates: start: 20150625, end: 20150630
  3. NORTRIPTYLINE [Concomitant]
     Active Substance: NORTRIPTYLINE
     Indication: HEAD INJURY
  4. OXYNEO [Concomitant]
     Active Substance: OXYCODONE
     Indication: HEAD INJURY
  5. SYNTHROID [Concomitant]
     Active Substance: LEVOTHYROXINE SODIUM
     Indication: HYPOTHYROIDISM
  6. ALVESCO [Concomitant]
     Active Substance: CICLESONIDE
     Indication: ASTHMA
  7. SALBUTAMOL [Concomitant]
     Active Substance: ALBUTEROL
     Indication: ASTHMA
  8. BEZAFIBRATE [Concomitant]
     Active Substance: BEZAFIBRATE
     Indication: BLOOD CHOLESTEROL
  9. LYRICA [Concomitant]
     Active Substance: PREGABALIN
     Indication: HEAD INJURY
  10. TOPAMAX [Concomitant]
     Active Substance: TOPIRAMATE
     Indication: HEADACHE
  11. MODAFINIL. [Concomitant]
     Active Substance: MODAFINIL
     Indication: HEAD INJURY

REACTIONS (2)
  - Escherichia sepsis [Recovered/Resolved]
  - Urinary tract infection [Unknown]

NARRATIVE: CASE EVENT DATE: 20150630
